FAERS Safety Report 9894383 (Version 2)
Quarter: 2014Q1

REPORT INFORMATION
  Report Type: Spontaneous
  Country: GB (occurrence: GB)
  Receive Date: 20140213
  Receipt Date: 20140304
  Transmission Date: 20141002
  Serious: Yes (Other)
  Sender: FDA-Public Use
  Company Number: GB-MERCK-1402GBR001825

PATIENT
  Age: 70 Year
  Sex: Male

DRUGS (4)
  1. LOSARTAN POTASSIUM 25 MG FILM-COATED TABLETS [Suspect]
     Indication: HYPERTENSION
     Dosage: 25 MG, QD
     Route: 048
     Dates: start: 20131202
  2. LOSARTAN POTASSIUM [Suspect]
     Indication: HYPERTENSION
     Dosage: 25 MG, QD
     Route: 048
     Dates: start: 20131220, end: 20140106
  3. ATORVASTATIN [Concomitant]
     Dosage: 10 MG, QD
     Route: 048
  4. TAMSULOSIN HYDROCHLORIDE [Concomitant]
     Indication: BENIGN PROSTATIC HYPERPLASIA
     Dosage: 400 MICROGRAM, QD
     Route: 048

REACTIONS (2)
  - Blood pressure increased [Unknown]
  - Product quality issue [Unknown]
